FAERS Safety Report 23941287 (Version 1)
Quarter: 2024Q2

REPORT INFORMATION
  Report Type: Spontaneous
  Country: CN (occurrence: CN)
  Receive Date: 20240605
  Receipt Date: 20240605
  Transmission Date: 20240716
  Serious: Yes (Hospitalization)
  Sender: FDA-Public Use
  Company Number: CN-PFIZER INC-PV202400072877

PATIENT
  Age: 68 Year
  Sex: Female
  Weight: 70 kg

DRUGS (6)
  1. CYTARABINE [Suspect]
     Active Substance: CYTARABINE
     Indication: Chemotherapy
     Dosage: 2.5 G, 2X/DAY
     Route: 041
     Dates: start: 20240516, end: 20240518
  2. RITUXIMAB [Suspect]
     Active Substance: RITUXIMAB
     Indication: Chemotherapy
     Dosage: 600 MG, 1X/DAY
     Route: 041
     Dates: start: 20240515, end: 20240515
  3. CISPLATIN [Suspect]
     Active Substance: CISPLATIN
     Indication: Chemotherapy
     Dosage: 180 MG, 1X/DAY
     Route: 041
     Dates: start: 20240515, end: 20240516
  4. DEXAMETHASONE SODIUM PHOSPHATE [Concomitant]
     Active Substance: DEXAMETHASONE PHOSPHATE\DEXAMETHASONE SODIUM PHOSPHATE
     Indication: Antiallergic therapy
     Dosage: 20 MG, 1X/DAY
     Route: 042
     Dates: start: 20240515, end: 20240519
  5. SODIUM CHLORIDE [Concomitant]
     Active Substance: SODIUM CHLORIDE
     Indication: Vehicle solution use
     Dosage: 500 ML, 1X/DAY
     Route: 041
     Dates: start: 20240515, end: 20240516
  6. SODIUM CHLORIDE [Concomitant]
     Active Substance: SODIUM CHLORIDE
     Dosage: 500 ML, 12 TIMES A DAY
     Route: 041
     Dates: start: 20240516, end: 20240518

REACTIONS (1)
  - Nephropathy toxic [Unknown]

NARRATIVE: CASE EVENT DATE: 20240527
